FAERS Safety Report 7889310-3 (Version None)
Quarter: 2011Q4

REPORT INFORMATION
  Report Type: 
  Country: None (occurrence: None)
  Receive Date: 20111103
  Receipt Date: 20111024
  Transmission Date: 20120403
  Serious: Yes (Hospitalization, Other)
  Sender: FDA-Public Use
  Company Number: US-BAYER-2011-001010

PATIENT
  Age: 44 Year
  Sex: Female
  Weight: 64.399 kg

DRUGS (10)
  1. ZOLPIDEM [Concomitant]
     Indication: SLEEP DISORDER
     Dosage: 10 MG, QD
     Route: 048
     Dates: start: 20090304, end: 20090801
  2. FLUCONAZOLE [Concomitant]
     Indication: FUNGAL INFECTION
     Dosage: 150 MG, QD
     Route: 048
     Dates: start: 20090320
  3. NUVARING [Concomitant]
     Dosage: 0.12 MG, UNK
     Dates: start: 20090312
  4. YAZ [Suspect]
  5. PROMETRIUM [Concomitant]
     Indication: MENOPAUSE
  6. VENLAFAXINE [Concomitant]
     Indication: DEPRESSION
     Dosage: 75 MG, TID
     Route: 048
     Dates: start: 20090306, end: 20090406
  7. PROMETRIUM [Concomitant]
     Indication: HORMONE THERAPY
     Dosage: 100 MG, QD
     Dates: start: 20090304, end: 20090403
  8. YAZ [Suspect]
     Indication: MENSTRUATION IRREGULAR
  9. YAZ [Suspect]
     Indication: PREMENSTRUAL SYNDROME
     Dosage: UNK
     Dates: start: 20090320, end: 20090406
  10. SYNTHROID [Concomitant]
     Indication: HYPOTHYROIDISM
     Dosage: 25 MCG/24HR, UNK
     Route: 048
     Dates: start: 20080118

REACTIONS (11)
  - ATELECTASIS [None]
  - CARDIAC DISORDER [None]
  - LYMPHADENOPATHY [None]
  - CHEST PAIN [None]
  - PNEUMOTHORAX [None]
  - PULMONARY EMBOLISM [None]
  - PULMONARY INFARCTION [None]
  - PLEURAL EFFUSION [None]
  - EMOTIONAL DISTRESS [None]
  - DYSPNOEA [None]
  - ANXIETY [None]
